FAERS Safety Report 7416292-0 (Version None)
Quarter: 2011Q2

REPORT INFORMATION
  Report Type: 
  Country: None (occurrence: None)
  Receive Date: 20110414
  Receipt Date: 20110406
  Transmission Date: 20111010
  Serious: Yes (Hospitalization, Other)
  Sender: FDA-Public Use
  Company Number: US-ELI_LILLY_AND_COMPANY-US201103001039

PATIENT
  Sex: Female
  Weight: 65.7 kg

DRUGS (4)
  1. COUMADIN [Concomitant]
  2. EFFIENT [Suspect]
     Indication: STENT PLACEMENT
     Dosage: 10 MG, QD
     Route: 048
     Dates: start: 20110124
  3. SOTALOL HCL [Concomitant]
  4. ASPIRIN [Concomitant]

REACTIONS (5)
  - DIARRHOEA [None]
  - CONTUSION [None]
  - NASOPHARYNGITIS [None]
  - VEIN DISORDER [None]
  - HOSPITALISATION [None]
